FAERS Safety Report 7208260-9 (Version None)
Quarter: 2011Q1

REPORT INFORMATION
  Report Type: 
  Country: None (occurrence: None)
  Receive Date: 20110104
  Receipt Date: 20101226
  Transmission Date: 20110831
  Serious: Yes (Death)
  Sender: FDA-Public Use
  Company Number: IT-JNJFOC-20101204178

PATIENT
  Age: 70 Year
  Sex: Male

DRUGS (16)
  1. ASPIRIN [Concomitant]
  2. ARTIFICIAL TEARS NOS [Concomitant]
  3. PROVISACOR [Concomitant]
  4. RIVOTRIL [Concomitant]
  5. FOLINA [Concomitant]
  6. ALENDRONIC ACID [Concomitant]
  7. MEDROL [Concomitant]
  8. METHOTREXATE [Concomitant]
  9. VOLTAREN [Concomitant]
  10. TACHIPIRINA [Concomitant]
  11. SICCAFLUID [Concomitant]
     Route: 047
  12. REMICADE [Suspect]
     Indication: RHEUMATOID ARTHRITIS
     Route: 042
  13. BENTELAN [Suspect]
     Indication: BACK PAIN
     Route: 030
  14. DIDROGYL [Concomitant]
  15. LANSOX [Concomitant]
  16. NICETILE [Concomitant]

REACTIONS (6)
  - TOXOPLASMOSIS [None]
  - EPSTEIN-BARR VIRUS TEST POSITIVE [None]
  - DECUBITUS ULCER [None]
  - KLEBSIELLA SEPSIS [None]
  - SCIATICA [None]
  - PSEUDOMEMBRANOUS COLITIS [None]
